FAERS Safety Report 6271033-8 (Version None)
Quarter: 2009Q3

REPORT INFORMATION
  Report Type: 
  Country: None (occurrence: None)
  Receive Date: 20090716
  Receipt Date: 20090706
  Transmission Date: 20100115
  Serious: Yes (Other)
  Sender: FDA-Public Use
  Company Number: US-ELI_LILLY_AND_COMPANY-US200907001419

PATIENT
  Sex: Male

DRUGS (4)
  1. PROZAC [Suspect]
     Dosage: 20 MG, UNKNOWN
     Route: 065
  2. PROZAC [Suspect]
     Dosage: 40 MG, UNKNOWN
     Route: 065
  3. PROZAC [Suspect]
     Dosage: 60 MG, UNKNOWN
     Route: 065
  4. FLUOXETINE HCL [Concomitant]
     Dosage: UNK, UNKNOWN
     Route: 065

REACTIONS (5)
  - DEPRESSION [None]
  - DRUG INEFFECTIVE [None]
  - FEELING ABNORMAL [None]
  - NERVOUS SYSTEM DISORDER [None]
  - THINKING ABNORMAL [None]
